FAERS Safety Report 10638686 (Version 5)
Quarter: 2015Q2

REPORT INFORMATION
  Report Type: Report from Study
  Country: GR (occurrence: GR)
  Receive Date: 20141208
  Receipt Date: 20150407
  Transmission Date: 20150821
  Serious: Yes (Hospitalization, Other)
  Sender: FDA-Public Use
  Company Number: GR-CELGENE-GRC-2014120707

PATIENT
  Age: 76 Year
  Sex: Male
  Weight: 55 kg

DRUGS (4)
  1. ABRAXANE [Suspect]
     Active Substance: PACLITAXEL
     Indication: ADENOCARCINOMA GASTRIC
     Route: 041
     Dates: start: 20140502
  2. ABRAXANE [Suspect]
     Active Substance: PACLITAXEL
     Route: 041
     Dates: start: 20140704, end: 20140804
  3. ABRAXANE [Suspect]
     Active Substance: PACLITAXEL
     Route: 041
     Dates: start: 20140704
  4. ABRAXANE [Suspect]
     Active Substance: PACLITAXEL
     Route: 041
     Dates: start: 20140606, end: 20140612

REACTIONS (5)
  - Neutropenia [Recovered/Resolved with Sequelae]
  - Anaemia [Not Recovered/Not Resolved]
  - Haematemesis [Recovered/Resolved]
  - Neutropenia [Recovered/Resolved]
  - Neutropenia [Recovered/Resolved]

NARRATIVE: CASE EVENT DATE: 20140509
